FAERS Safety Report 21400626 (Version 1)
Quarter: 2022Q4

REPORT INFORMATION
  Report Type: Spontaneous
  Country: US (occurrence: US)
  Receive Date: 20221003
  Receipt Date: 20221003
  Transmission Date: 20230113
  Serious: No
  Sender: FDA-Public Use
  Company Number: US-Accord-244943

PATIENT
  Sex: Female
  Weight: 76.20 kg

DRUGS (2)
  1. NALTREXONE HYDROCHLORIDE [Suspect]
     Active Substance: NALTREXONE HYDROCHLORIDE
     Indication: Decreased appetite
     Dosage: DOSE: 50MG BID
     Dates: end: 20211101
  2. BUPROPION [Concomitant]
     Active Substance: BUPROPION
     Indication: Decreased appetite

REACTIONS (5)
  - Blood pressure decreased [Recovered/Resolved]
  - Heart rate decreased [Recovered/Resolved]
  - Balance disorder [Recovered/Resolved]
  - Hypoacusis [Recovered/Resolved]
  - Nausea [Recovered/Resolved]
